FAERS Safety Report 5491484-9 (Version None)
Quarter: 2007Q4

REPORT INFORMATION
  Report Type: 
  Country: None (occurrence: None)
  Receive Date: 20071022
  Receipt Date: 20071011
  Transmission Date: 20080405
  Serious: Yes (Other)
  Sender: FDA-Public Use
  Company Number: PHBS2007JP17016

PATIENT

DRUGS (2)
  1. TEGRETOL [Suspect]
     Indication: HYPOAESTHESIA
     Route: 048
  2. ALCOHOL [Suspect]

REACTIONS (1)
  - ROAD TRAFFIC ACCIDENT [None]
